FAERS Safety Report 25119567 (Version 1)
Quarter: 2025Q1

REPORT INFORMATION
  Report Type: Spontaneous
  Country: SI (occurrence: None)
  Receive Date: 20250325
  Receipt Date: 20250325
  Transmission Date: 20250409
  Serious: Yes (Other)
  Sender: INCYTE
  Company Number: SI-002147023-NVSC2025SI047918

PATIENT
  Age: 21 Year

DRUGS (1)
  1. RUXOLITINIB [Suspect]
     Active Substance: RUXOLITINIB
     Indication: Polycythaemia vera
     Route: 065

REACTIONS (17)
  - Alanine aminotransferase increased [Unknown]
  - Aspartate aminotransferase increased [Unknown]
  - Blood bilirubin increased [Unknown]
  - Blood bilirubin increased [Unknown]
  - Blood chloride increased [Unknown]
  - Gamma-glutamyltransferase increased [Unknown]
  - Haemoglobin decreased [Recovering/Resolving]
  - Mean cell haemoglobin decreased [Unknown]
  - Mean cell volume decreased [Unknown]
  - Monocyte count decreased [Unknown]
  - Neutrophil count increased [Unknown]
  - Off label use [Unknown]
  - Platelet distribution width increased [Unknown]
  - Pancreatitis [Unknown]
  - Protein deficiency [Unknown]
  - Red cell distribution width increased [Unknown]
  - Spontaneous bacterial peritonitis [Unknown]
